FAERS Safety Report 8722459 (Version 2)
Quarter: 2012Q4

REPORT INFORMATION
  Report Type: 
  Country: MA (occurrence: MA)
  Receive Date: 20120814
  Receipt Date: 20121015
  Transmission Date: 20130627
  Serious: Yes (Death, Other)
  Sender: FDA-Public Use
  Company Number: MA-ELI_LILLY_AND_COMPANY-MA201208002648

PATIENT
  Age: 47 Year
  Sex: Female

DRUGS (8)
  1. ALIMTA [Suspect]
     Dosage: UNK UNK, single
     Route: 042
  2. CISPLATIN [Concomitant]
  3. VITAMINS NOS [Concomitant]
     Indication: SUPPLEMENTATION THERAPY
  4. CORTICOSTEROID NOS [Concomitant]
  5. NEUROBION                          /00176001/ [Concomitant]
  6. VITAMIN B12 [Concomitant]
     Dosage: 1000 ug, UNK
  7. FOLATE [Concomitant]
     Dosage: 350 ug, UNK
  8. TARDYFERON [Concomitant]

REACTIONS (6)
  - Pancytopenia [Fatal]
  - Sepsis [Unknown]
  - Skin toxicity [Unknown]
  - Neutropenia [Unknown]
  - Mucosal inflammation [Unknown]
  - Rash generalised [Unknown]
